FAERS Safety Report 9335052 (Version 1)
Quarter: 2013Q2

REPORT INFORMATION
  Report Type: Spontaneous
  Country: NL (occurrence: NL)
  Receive Date: 20130606
  Receipt Date: 20130606
  Transmission Date: 20140414
  Serious: Yes (Death)
  Sender: FDA-Public Use
  Company Number: NL-PFIZER INC-2013169098

PATIENT
  Age: 70 Year
  Sex: Male
  Weight: 80 kg

DRUGS (1)
  1. LIPITOR [Suspect]
     Indication: HYPERCHOLESTEROLAEMIA
     Dosage: 40 MG, UNK
     Dates: start: 19880201, end: 20110910

REACTIONS (2)
  - Cardiac disorder [Fatal]
  - Myalgia [Unknown]
